APPROVED DRUG PRODUCT: TADALAFIL
Active Ingredient: TADALAFIL
Strength: 5MG
Dosage Form/Route: TABLET;ORAL
Application: A209744 | Product #002 | TE Code: AB1
Applicant: AMNEAL PHARMACEUTICALS CO GMBH
Approved: Mar 26, 2019 | RLD: No | RS: No | Type: RX